FAERS Safety Report 9270607 (Version 2)
Quarter: 2013Q2

REPORT INFORMATION
  Report Type: Report from Study
  Country: IN (occurrence: IN)
  Receive Date: 20130503
  Receipt Date: 20130613
  Transmission Date: 20140414
  Serious: Yes (Hospitalization)
  Sender: FDA-Public Use
  Company Number: IN-BRISTOL-MYERS SQUIBB COMPANY-18827196

PATIENT
  Age: 24 Year
  Sex: Female
  Weight: 37 kg

DRUGS (2)
  1. ATAZANAVIR [Suspect]
     Indication: HIV INFECTION
     Route: 048
     Dates: start: 20080107, end: 20130415
  2. COMBIVIR [Suspect]
     Indication: HIV INFECTION
     Dosage: 1DF= 150/300MG
     Route: 048
     Dates: start: 20080107, end: 20130415

REACTIONS (1)
  - Gastritis [Recovered/Resolved]
